FAERS Safety Report 5709058-0 (Version None)
Quarter: 2008Q2

REPORT INFORMATION
  Report Type: 
  Country: None (occurrence: None)
  Receive Date: 20080418
  Receipt Date: 20080418
  Transmission Date: 20081010
  Serious: Yes (Hospitalization, Disabling)
  Sender: FDA-Public Use
  Company Number: None

PATIENT
  Age: 56 Year
  Sex: Female

DRUGS (2)
  1. HEPARIN [Suspect]
     Indication: CHEMOTHERAPY
     Dosage: PER PROTOCOL IV DRIP
     Route: 041
     Dates: start: 20071218, end: 20080112
  2. CYTARABINE [Suspect]
     Indication: ACUTE MYELOID LEUKAEMIA
     Dosage: 160MG QPMX 7 IV
     Route: 042
     Dates: start: 20071214, end: 20071221

REACTIONS (1)
  - HIDRADENITIS [None]
